FAERS Safety Report 12550016 (Version 9)
Quarter: 2018Q2

REPORT INFORMATION
  Report Type: Report from Study
  Country: None (occurrence: BR)
  Receive Date: 20160712
  Receipt Date: 20180416
  Transmission Date: 20180711
  Serious: Yes (Hospitalization, Other)
  Sender: FDA-Public Use
  Company Number: BR-ABBVIE-16K-020-1671457-00

PATIENT
  Sex: Female
  Weight: 52 kg

DRUGS (10)
  1. HUMIRA [Suspect]
     Active Substance: ADALIMUMAB
     Indication: PSORIATIC ARTHROPATHY
     Route: 058
     Dates: end: 2015
  2. ALPRAZOLAM. [Concomitant]
     Active Substance: ALPRAZOLAM
     Indication: DEPRESSION
     Route: 048
     Dates: start: 20040401
  3. CHLOROQUINE. [Concomitant]
     Active Substance: CHLOROQUINE
     Indication: ARTHRITIS
     Route: 048
     Dates: start: 2010
  4. TRAMADOL. [Concomitant]
     Active Substance: TRAMADOL
     Indication: ARTHRITIS
     Route: 048
     Dates: start: 2010
  5. FAMOTIDINE. [Concomitant]
     Active Substance: FAMOTIDINE
     Indication: ARTHRITIS
     Route: 048
     Dates: start: 2010
  6. HUMIRA [Suspect]
     Active Substance: ADALIMUMAB
     Route: 058
  7. DICLOFENAC SODIUM. [Concomitant]
     Active Substance: DICLOFENAC SODIUM
     Indication: ARTHRITIS
     Route: 048
     Dates: start: 2010
  8. TIBOLONE [Concomitant]
     Active Substance: TIBOLONE
     Indication: HORMONE REPLACEMENT THERAPY
     Route: 048
  9. HUMIRA [Suspect]
     Active Substance: ADALIMUMAB
     Route: 058
     Dates: end: 2017
  10. VENLAFAXINE [Concomitant]
     Active Substance: VENLAFAXINE HYDROCHLORIDE
     Indication: DEPRESSION
     Route: 048
     Dates: start: 2011

REACTIONS (20)
  - Swelling [Unknown]
  - Blister rupture [Unknown]
  - Insomnia [Not Recovered/Not Resolved]
  - Pain [Recovering/Resolving]
  - Procedural pain [Not Recovered/Not Resolved]
  - Wound complication [Recovering/Resolving]
  - Somnolence [Unknown]
  - Scar [Not Recovered/Not Resolved]
  - Pruritus [Recovering/Resolving]
  - Skin wound [Unknown]
  - Skin burning sensation [Recovering/Resolving]
  - Blister [Recovering/Resolving]
  - Wound [Unknown]
  - Pain [Recovering/Resolving]
  - Impaired healing [Unknown]
  - Psoriasis [Unknown]
  - Dry skin [Not Recovered/Not Resolved]
  - Dermatitis allergic [Recovering/Resolving]
  - Insomnia [Recovered/Resolved]
  - Ligament rupture [Recovering/Resolving]

NARRATIVE: CASE EVENT DATE: 2015
